FAERS Safety Report 25819552 (Version 2)
Quarter: 2025Q4

REPORT INFORMATION
  Report Type: Spontaneous
  Country: US (occurrence: US)
  Receive Date: 20250918
  Receipt Date: 20251015
  Transmission Date: 20260117
  Serious: Yes (Other)
  Sender: BAUSCH AND LOMB
  Company Number: US-MLMSERVICE-20250910-PI638256-00117-1

PATIENT
  Age: 14 Year
  Sex: Male

DRUGS (14)
  1. DEXAMETHASONE [Suspect]
     Active Substance: DEXAMETHASONE
     Indication: T-cell type acute leukaemia
     Dosage: COG AALL0434 ARM B INDUCTION PHASE
     Route: 065
     Dates: start: 2022
  2. VINCRISTINE [Concomitant]
     Active Substance: VINCRISTINE
     Indication: T-cell type acute leukaemia
     Dosage: COG AALL1231 DEXAMETHASONE-BASED INDUCTION: 1.5 MG/M? IV (MAX 2 MG), DAYS: 1, 8, 15, 22
     Route: 042
     Dates: start: 2022
  3. VINCRISTINE [Concomitant]
     Active Substance: VINCRISTINE
     Dosage: COG AALL0434 ARM B INDUCTION PHASE
     Route: 042
     Dates: start: 2022
  4. VINCRISTINE [Concomitant]
     Active Substance: VINCRISTINE
     Dosage: COG AALL0434 ARM B CONSOLIDATION PHASE
     Route: 042
     Dates: start: 2022
  5. DAUNORUBICIN [Concomitant]
     Active Substance: DAUNORUBICIN
     Indication: T-cell type acute leukaemia
     Dosage: COG AALL1231 DEXAMETHASONE-BASED INDUCTION: 25 MG/M? IV (MAX 2 MG), DAYS: 1, 8, 15, 22
     Route: 042
     Dates: start: 2022
  6. DAUNORUBICIN [Concomitant]
     Active Substance: DAUNORUBICIN
     Dosage: COG AALL0434 ARM B INDUCTION PHASE
     Route: 042
     Dates: start: 2022
  7. PEGASPARGASE [Concomitant]
     Active Substance: PEGASPARGASE
     Indication: T-cell type acute leukaemia
     Dosage: COG AALL1231 DEXAMETHASONE-BASED INDUCTION: 2,500 UNITS/M? IV OR IM, DAY: 4 (OR 5 OR 6) IM OR IV
     Route: 042
     Dates: start: 2022
  8. PEGASPARGASE [Concomitant]
     Active Substance: PEGASPARGASE
     Dosage: COG AALL0434 ARM B INDUCTION PHASE
     Dates: start: 2022
  9. PEGASPARGASE [Concomitant]
     Active Substance: PEGASPARGASE
     Dosage: COG AALL0434 ARM B CONSOLIDATION PHASE IM OR IV
     Dates: start: 2022
  10. METHOTREXATE [Concomitant]
     Active Substance: METHOTREXATE
     Indication: T-cell type acute leukaemia
     Dosage: GIVEN IT OR PO
     Route: 029
     Dates: start: 2022
  11. CYCLOPHOSPHAMIDE [Concomitant]
     Active Substance: CYCLOPHOSPHAMIDE
     Indication: T-cell type acute leukaemia
     Dosage: CONSOLIDATION PHASE
     Route: 042
     Dates: start: 2022
  12. CYTARABINE [Concomitant]
     Active Substance: CYTARABINE
     Indication: T-cell type acute leukaemia
     Dosage: CONSOLIDATION PHASE
     Route: 042
     Dates: start: 2022
  13. MERCAPTOPURINE [Concomitant]
     Active Substance: MERCAPTOPURINE
     Indication: T-cell type acute leukaemia
     Dosage: CONSOLIDATION PHASE
     Route: 048
     Dates: start: 2022
  14. NELARABINE [Concomitant]
     Active Substance: NELARABINE
     Indication: T-cell type acute leukaemia
     Dosage: CONSOLIDATION PHASE
     Route: 042
     Dates: start: 2022

REACTIONS (1)
  - Steroid diabetes [Recovered/Resolved]

NARRATIVE: CASE EVENT DATE: 20220101
